FAERS Safety Report 21640961 (Version 1)
Quarter: 2022Q4

REPORT INFORMATION
  Report Type: Spontaneous
  Country: CN (occurrence: None)
  Receive Date: 20221125
  Receipt Date: 20221125
  Transmission Date: 20230113
  Serious: Yes (Other)
  Sender: FDA-Public Use
  Company Number: CN-ROCHE-3224997

PATIENT
  Age: 49 Year
  Sex: Female
  Weight: 64 kg

DRUGS (2)
  1. XELODA [Suspect]
     Active Substance: CAPECITABINE
     Indication: Peritoneal neoplasm
     Route: 048
     Dates: start: 20220925, end: 20221008
  2. OXALIPLATIN [Suspect]
     Active Substance: OXALIPLATIN
     Indication: Peritoneal neoplasm
     Route: 041
     Dates: start: 20220925, end: 20220925

REACTIONS (2)
  - Myelosuppression [Recovered/Resolved]
  - Off label use [Unknown]

NARRATIVE: CASE EVENT DATE: 20221028
